FAERS Safety Report 4701552-4 (Version None)
Quarter: 2005Q2

REPORT INFORMATION
  Report Type: 
  Country: None (occurrence: None)
  Receive Date: 20050627
  Receipt Date: 20050527
  Transmission Date: 20051028
  Serious: Yes (Hospitalization)
  Sender: FDA-Public Use
  Company Number: ALMO2005013

PATIENT
  Age: 47 Year
  Sex: Male
  Weight: 55 kg

DRUGS (6)
  1. ALMOGRAN [Suspect]
     Dates: start: 20040101
  2. ASCOTOP [Concomitant]
  3. DOLORMIN [Concomitant]
  4. NARAMIG [Concomitant]
  5. MAXALT [Concomitant]
  6. VIOXX [Concomitant]

REACTIONS (4)
  - CONFUSIONAL STATE [None]
  - MULTIPLE DRUG OVERDOSE [None]
  - SUICIDE ATTEMPT [None]
  - VOMITING [None]
